FAERS Safety Report 7883490-1 (Version None)
Quarter: 2011Q4

REPORT INFORMATION
  Report Type: 
  Country: None (occurrence: None)
  Receive Date: 20111102
  Receipt Date: 20110131
  Transmission Date: 20120403
  Serious: No
  Sender: FDA-Public Use
  Company Number: US-GLAXOSMITHKLINE-A0910700A

PATIENT
  Age: 64 Year
  Sex: Female

DRUGS (15)
  1. RYTHMOL SR [Suspect]
     Indication: ATRIAL FIBRILLATION
     Dosage: 425MG TWICE PER DAY
     Route: 048
     Dates: start: 20040101, end: 20110130
  2. ACTOS [Concomitant]
  3. VITAMIN B COMPLEX CAP [Concomitant]
  4. ALPHA LIPOIC ACID [Concomitant]
  5. LANTUS [Concomitant]
  6. L-LYSINE [Concomitant]
  7. MINERAL SUPPLEMENT [Concomitant]
  8. AMLODIPINE BESYLATE [Concomitant]
  9. LEVOTHYROXINE SODIUM [Concomitant]
  10. COUMADIN [Concomitant]
  11. CITALOPRAM HYDROBROMIDE [Concomitant]
  12. ESSENTIAL FATTY ACIDS [Concomitant]
  13. CO-Q10 [Concomitant]
  14. MULTI-VITAMIN [Concomitant]
  15. MAGNESIUM [Concomitant]

REACTIONS (1)
  - DRUG INEFFECTIVE [None]
